FAERS Safety Report 8200571-3 (Version None)
Quarter: 2012Q1

REPORT INFORMATION
  Report Type: 
  Country: None (occurrence: None)
  Receive Date: 20120305
  Receipt Date: 20120228
  Transmission Date: 20120608
  Serious: Yes (Other)
  Sender: FDA-Public Use
  Company Number: 2012031429

PATIENT
  Age: 69 Year
  Sex: Male
  Weight: 86.1834 kg

DRUGS (25)
  1. HIZENTRA [Suspect]
     Indication: IMMUNODEFICIENCY COMMON VARIABLE
     Dosage: (1 GM (5 ML) SUBCUTANEOUS), (2 GM (10 ML) SUBCUTANEOUS), (4 G (20 ML) SUBCUTANEOUS)
     Route: 058
     Dates: start: 20120224, end: 20120224
  2. HIZENTRA [Suspect]
     Indication: IMMUNODEFICIENCY COMMON VARIABLE
     Dosage: (1 GM (5 ML) SUBCUTANEOUS), (2 GM (10 ML) SUBCUTANEOUS), (4 G (20 ML) SUBCUTANEOUS)
     Route: 058
     Dates: start: 20120224, end: 20120224
  3. HIZENTRA [Suspect]
     Indication: IMMUNODEFICIENCY COMMON VARIABLE
     Dosage: (1 GM (5 ML) SUBCUTANEOUS), (2 GM (10 ML) SUBCUTANEOUS), (4 G (20 ML) SUBCUTANEOUS)
     Route: 058
     Dates: start: 20120224, end: 20120224
  4. ZOCOR [Concomitant]
  5. ACETAMINOPHEN [Concomitant]
  6. FOSAMAX [Concomitant]
  7. ASCORBIC ACID [Concomitant]
  8. HIZENTRA [Suspect]
  9. NORVASC [Concomitant]
  10. MULTIVITAMIN (MULTIVITAMIN /00831701/) [Concomitant]
  11. PREDNISONE TAB [Concomitant]
  12. CALCIUM CARBONATE [Concomitant]
  13. XANAX [Concomitant]
  14. PAXIL [Concomitant]
  15. GABAPENTIN [Concomitant]
  16. HIZENTRA [Suspect]
  17. BIAXIN [Concomitant]
  18. SPIRIVA [Concomitant]
  19. ALBUTEROL [Concomitant]
  20. FISH OIL (FISH OIL) [Concomitant]
  21. IRON (IRON) [Concomitant]
  22. FUROSEMIDE (FUROSEMIDE) [Concomitant]
  23. VICODIN [Concomitant]
  24. PROTONIX [Concomitant]
  25. FORADIL [Concomitant]

REACTIONS (5)
  - DEPRESSION [None]
  - RESPIRATORY TRACT INFECTION [None]
  - PRODUCTIVE COUGH [None]
  - SKIN EXFOLIATION [None]
  - DRY SKIN [None]
